FAERS Safety Report 7206065-6 (Version None)
Quarter: 2011Q1

REPORT INFORMATION
  Report Type: 
  Country: None (occurrence: None)
  Receive Date: 20110103
  Receipt Date: 20101220
  Transmission Date: 20110831
  Serious: Yes (Other)
  Sender: FDA-Public Use
  Company Number: BR-RANBAXY-2010R5-40603

PATIENT

DRUGS (2)
  1. CEPHALEXIN [Suspect]
     Indication: THROAT IRRITATION
     Dosage: 500 MG, 2 TABLETS EVERY 8 HOURS
     Route: 048
     Dates: start: 20101215, end: 20101217
  2. CEPHALEXIN [Suspect]
     Indication: URINE COLOUR ABNORMAL

REACTIONS (5)
  - PYREXIA [None]
  - HEADACHE [None]
  - ABDOMINAL PAIN [None]
  - CHILLS [None]
  - DIARRHOEA HAEMORRHAGIC [None]
